FAERS Safety Report 17038591 (Version 1)
Quarter: 2019Q4

REPORT INFORMATION
  Report Type: Spontaneous
  Country: US (occurrence: US)
  Receive Date: 20191115
  Receipt Date: 20191115
  Transmission Date: 20200122
  Serious: Yes (Other)
  Sender: FDA-Public Use
  Company Number: US-JNJFOC-20191106503

PATIENT
  Age: 19 Year
  Sex: Female
  Weight: 104.42 kg

DRUGS (1)
  1. NEUTROGENA RAPID CLEAR STUBBORN DAILY LEAVE ON MASK [Suspect]
     Active Substance: BENZOYL PEROXIDE
     Indication: ACNE
     Dosage: ONE MASK, ONCE
     Route: 061
     Dates: start: 20191103, end: 20191103

REACTIONS (5)
  - Application site erythema [Recovered/Resolved]
  - Blindness transient [Recovered/Resolved]
  - Deafness transitory [Recovered/Resolved]
  - Application site pain [Recovered/Resolved]
  - Application site warmth [Recovered/Resolved]

NARRATIVE: CASE EVENT DATE: 201911
